FAERS Safety Report 10261053 (Version 1)
Quarter: 2014Q2

REPORT INFORMATION
  Report Type: Spontaneous
  Country: FR (occurrence: FR)
  Receive Date: 20140626
  Receipt Date: 20140626
  Transmission Date: 20141212
  Serious: Yes (Hospitalization)
  Sender: FDA-Public Use
  Company Number: FR-ROCHE-1425250

PATIENT
  Age: 78 Year
  Sex: Male

DRUGS (5)
  1. LUCENTIS [Suspect]
     Indication: PRODUCT USED FOR UNKNOWN INDICATION
     Route: 050
  2. LUCENTIS [Suspect]
     Dosage: REDUCED DOSE
     Route: 050
  3. LUMIGAN [Concomitant]
     Route: 065
     Dates: start: 2006
  4. ALPHAGAN [Concomitant]
     Route: 065
     Dates: start: 2011
  5. GELTIM [Concomitant]
     Route: 065
     Dates: start: 2013

REACTIONS (1)
  - Myocardial infarction [Recovering/Resolving]
